FAERS Safety Report 6035584-3 (Version None)
Quarter: 2009Q1

REPORT INFORMATION
  Report Type: 
  Country: None (occurrence: None)
  Receive Date: 20090113
  Receipt Date: 20090107
  Transmission Date: 20090719
  Serious: Yes (Other)
  Sender: FDA-Public Use
  Company Number: IE-BAYER-200813291BNE

PATIENT
  Sex: Female

DRUGS (1)
  1. MIRENA [Suspect]
     Indication: CONTRACEPTION
     Route: 015
     Dates: start: 20070717

REACTIONS (8)
  - ABDOMINAL PAIN [None]
  - BACK PAIN [None]
  - HAEMATURIA [None]
  - IUD MIGRATION [None]
  - PELVIC PAIN [None]
  - PILONIDAL CYST [None]
  - PROTEINURIA [None]
  - UTERINE RUPTURE [None]
